FAERS Safety Report 6975723-0 (Version None)
Quarter: 2010Q3

REPORT INFORMATION
  Report Type: 
  Country: None (occurrence: None)
  Receive Date: 20100910
  Receipt Date: 20090402
  Transmission Date: 20110219
  Serious: No
  Sender: FDA-Public Use
  Company Number: US-WYE-H08813409

PATIENT
  Sex: Female
  Weight: 74 kg

DRUGS (3)
  1. PRISTIQ [Suspect]
     Indication: DEPRESSION
     Route: 048
     Dates: start: 20081201
  2. ETHANOL [Suspect]
     Dosage: 2 TO 3 MARTINIS
     Route: 048
     Dates: start: 20090325, end: 20090325
  3. NEBIVOLOL [Concomitant]

REACTIONS (2)
  - AMNESIA [None]
  - LOSS OF CONSCIOUSNESS [None]
